FAERS Safety Report 26214617 (Version 1)
Quarter: 2025Q4

REPORT INFORMATION
  Report Type: Spontaneous
  Country: EU (occurrence: EU)
  Receive Date: 20251230
  Receipt Date: 20251230
  Transmission Date: 20260117
  Serious: Yes (Life-Threatening)
  Sender: MYLAN
  Company Number: None

PATIENT
  Age: 58 Year
  Sex: Male
  Weight: 76 kg

DRUGS (7)
  1. VALACYCLOVIR HYDROCHLORIDE [Suspect]
     Active Substance: VALACYCLOVIR HYDROCHLORIDE
     Indication: Antiviral prophylaxis
     Dosage: 500 MILLIGRAM, QD
     Route: 061
     Dates: start: 20251126, end: 20251204
  2. ACYCLOVIR [Suspect]
     Active Substance: ACYCLOVIR
     Indication: Antiviral prophylaxis
     Dosage: 720 MG, 1 TOTAL (360MG AT MIDNIGHT THEN AT 8 AM)
     Dates: start: 20251205, end: 20251206
  3. ZOMETA [Suspect]
     Active Substance: ZOLEDRONIC ACID
     Indication: Product used for unknown indication
     Dosage: 1 DOSAGE FORM, 1 TOTAL
     Dates: start: 20251110, end: 20251110
  4. MELPHALAN [Suspect]
     Active Substance: MELPHALAN
     Indication: Plasma cell myeloma
     Dosage: 200 MILLIGRAM/SQ. METER, 1 TOTAL
     Dates: start: 20251126, end: 20251126
  5. FLUCONAZOLE [Suspect]
     Active Substance: FLUCONAZOLE
     Indication: Pyrexia
     Dosage: 400 MILLIGRAM, QD
     Route: 061
     Dates: start: 20251129, end: 20251204
  6. FLUCONAZOLE [Suspect]
     Active Substance: FLUCONAZOLE
     Indication: Pyrexia
     Dosage: 400 MILLIGRAM, QD
     Dates: start: 20251205, end: 20251208
  7. Piperacillin + tazobactam/viatris [Concomitant]
     Indication: Antibiotic therapy
     Dosage: 4 GRAM, 1 TOTAL
     Dates: start: 20251129, end: 20251129

REACTIONS (4)
  - Pyrexia [Recovered/Resolved]
  - C-reactive protein increased [Recovering/Resolving]
  - Acute kidney injury [Recovering/Resolving]
  - Rash maculo-papular [Recovering/Resolving]

NARRATIVE: CASE EVENT DATE: 20251203
